FAERS Safety Report 20613829 (Version 2)
Quarter: 2022Q2

REPORT INFORMATION
  Report Type: Spontaneous
  Country: AU (occurrence: AU)
  Receive Date: 20220319
  Receipt Date: 20220404
  Transmission Date: 20220720
  Serious: Yes (Other)
  Sender: FDA-Public Use
  Company Number: AU-MACLEODS PHARMACEUTICALS US LTD-MAC2022034861

PATIENT

DRUGS (1)
  1. MONTELUKAST [Suspect]
     Active Substance: MONTELUKAST SODIUM
     Indication: Asthma
     Dosage: UNK
     Route: 065

REACTIONS (7)
  - Anxiety [Recovered/Resolved]
  - Nightmare [Not Recovered/Not Resolved]
  - Panic attack [Recovered/Resolved]
  - Formication [Recovered/Resolved]
  - Withdrawal syndrome [Recovered/Resolved]
  - Agitation [Recovered/Resolved]
  - Hallucination, auditory [Recovered/Resolved]
